FAERS Safety Report 7829107-3 (Version None)
Quarter: 2011Q4

REPORT INFORMATION
  Report Type: 
  Country: None (occurrence: None)
  Receive Date: 20111020
  Receipt Date: 20111006
  Transmission Date: 20120403
  Serious: Yes (Other)
  Sender: FDA-Public Use
  Company Number: PHEH2011US06076

PATIENT
  Sex: Female

DRUGS (4)
  1. SANDOSTATIN [Suspect]
     Indication: METASTATIC CARCINOID TUMOUR
     Dosage: 100 UG, BID
     Route: 058
     Dates: start: 20070501
  2. SANDOSTATIN LAR [Suspect]
     Indication: METASTATIC CARCINOID TUMOUR
     Dosage: 30 MG, QMO
     Route: 030
     Dates: start: 20090301
  3. SANDOSTATIN [Suspect]
     Dosage: 100 UG, BID
     Route: 058
     Dates: start: 20090301
  4. SANDOSTATIN [Suspect]
     Dosage: 150 UG, BID
     Route: 058

REACTIONS (11)
  - METASTASES TO LIVER [None]
  - RETROPERITONEAL LYMPHADENOPATHY [None]
  - FREQUENT BOWEL MOVEMENTS [None]
  - FLUSHING [None]
  - SERUM SEROTONIN INCREASED [None]
  - ABDOMINAL PAIN LOWER [None]
  - ABDOMINAL ADHESIONS [None]
  - SMALL INTESTINAL OBSTRUCTION [None]
  - NEOPLASM MALIGNANT [None]
  - HEPATIC LESION [None]
  - UTERINE DISORDER [None]
